FAERS Safety Report 16898973 (Version 1)
Quarter: 2019Q4

REPORT INFORMATION
  Report Type: Spontaneous
  Country: IN (occurrence: IN)
  Receive Date: 20191009
  Receipt Date: 20191009
  Transmission Date: 20200122
  Serious: Yes (Other)
  Sender: FDA-Public Use
  Company Number: IN-PFIZER INC-2018509104

PATIENT
  Age: 51 Year
  Sex: Male

DRUGS (1)
  1. SUTENT [Suspect]
     Active Substance: SUNITINIB MALATE
     Indication: METASTATIC RENAL CELL CARCINOMA
     Dosage: 50 MG, 1X/DAY
     Route: 048
     Dates: start: 20181115

REACTIONS (16)
  - Dyspepsia [Unknown]
  - Dry skin [Unknown]
  - Throat irritation [Unknown]
  - Skin swelling [Unknown]
  - Burning sensation [Unknown]
  - Tooth fracture [Unknown]
  - Syncope [Unknown]
  - Eye irritation [Unknown]
  - Pyrexia [Unknown]
  - Rash [Unknown]
  - Blood disorder [Unknown]
  - Mouth ulceration [Unknown]
  - Yellow skin [Unknown]
  - Blister [Unknown]
  - Acne [Unknown]
  - Skin exfoliation [Unknown]

NARRATIVE: CASE EVENT DATE: 2018
